FAERS Safety Report 6790375-0 (Version None)
Quarter: 2010Q2

REPORT INFORMATION
  Report Type: 
  Country: None (occurrence: None)
  Receive Date: 20100624
  Receipt Date: 20100614
  Transmission Date: 20101027
  Serious: Yes (Other)
  Sender: FDA-Public Use
  Company Number: PHHY2010GR38650

PATIENT
  Age: 75 Year
  Sex: Female

DRUGS (1)
  1. EXELON [Suspect]
     Indication: MEMORY IMPAIRMENT
     Dosage: 4.6 MG
     Route: 062
     Dates: start: 20100610

REACTIONS (4)
  - ASTHENIA [None]
  - FATIGUE [None]
  - ILLUSION [None]
  - VOMITING [None]
